FAERS Safety Report 22955086 (Version 3)
Quarter: 2024Q1

REPORT INFORMATION
  Report Type: Spontaneous
  Country: CA (occurrence: CA)
  Receive Date: 20230918
  Receipt Date: 20240321
  Transmission Date: 20240409
  Serious: Yes (Other)
  Sender: FDA-Public Use
  Company Number: CA-PFIZER INC-202300299941

PATIENT
  Age: 28 Year
  Sex: Female

DRUGS (2)
  1. CIBINQO [Suspect]
     Active Substance: ABROCITINIB
     Indication: Dermatitis atopic
     Dosage: 200 MG, 1X/DAY
     Route: 048
     Dates: start: 20230612
  2. CIBINQO [Suspect]
     Active Substance: ABROCITINIB
     Dosage: 200 MG, 1X/DAY
     Route: 048
     Dates: start: 2023

REACTIONS (2)
  - Bacteraemia [Recovered/Resolved]
  - Condition aggravated [Recovering/Resolving]

NARRATIVE: CASE EVENT DATE: 20230101
